FAERS Safety Report 15989972 (Version 1)
Quarter: 2019Q1

REPORT INFORMATION
  Report Type: Spontaneous
  Country: GB (occurrence: GB)
  Receive Date: 20190221
  Receipt Date: 20190221
  Transmission Date: 20190418
  Serious: Yes (Other)
  Sender: FDA-Public Use
  Company Number: GB-BAYER-GB-2006-013545

PATIENT
  Age: 33 Year
  Sex: Female
  Weight: 74 kg

DRUGS (2)
  1. MIRENA [Suspect]
     Active Substance: LEVONORGESTREL
     Indication: CONTRACEPTION
     Dosage: 20 ?G/DAY, CONT
     Route: 015
     Dates: start: 20050203, end: 20051103
  2. TYLEX [CARBINOXAMINE MALEATE;PARACETAMOL;PHENYLEPHRINE HYDROCHLORI [Concomitant]

REACTIONS (2)
  - Breast necrosis [Recovered/Resolved]
  - Nipple exudate bloody [Recovered/Resolved]

NARRATIVE: CASE EVENT DATE: 20051004
